FAERS Safety Report 13072238 (Version 8)
Quarter: 2018Q1

REPORT INFORMATION
  Report Type: Report from Study
  Country: US (occurrence: US)
  Receive Date: 20161229
  Receipt Date: 20180321
  Transmission Date: 20180508
  Serious: Yes (Hospitalization)
  Sender: FDA-Public Use
  Company Number: US-ACTELION-A-NJ2016-147169

PATIENT
  Age: 72 Year
  Sex: Male
  Weight: 95.24 kg

DRUGS (8)
  1. UPTRAVI [Suspect]
     Active Substance: SELEXIPAG
     Indication: PULMONARY ARTERIAL HYPERTENSION
     Dosage: 1000 MCG, BID
     Route: 048
  2. SILDENAFIL CITRATE. [Concomitant]
     Active Substance: SILDENAFIL CITRATE
  3. LETAIRIS [Concomitant]
     Active Substance: AMBRISENTAN
  4. UPTRAVI [Suspect]
     Active Substance: SELEXIPAG
     Dosage: 1400 MCG, BID
     Route: 048
  5. UPTRAVI [Suspect]
     Active Substance: SELEXIPAG
     Dosage: 1200 MCG, BID
     Route: 048
     Dates: start: 20161027
  6. ADEMPAS [Concomitant]
     Active Substance: RIOCIGUAT
  7. COUMADIN [Interacting]
     Active Substance: WARFARIN SODIUM
     Indication: PRODUCT USED FOR UNKNOWN INDICATION
     Dosage: UNK
     Route: 065
     Dates: end: 201612
  8. XARELTO [Concomitant]
     Active Substance: RIVAROXABAN
     Dosage: UNK
     Dates: start: 201612

REACTIONS (18)
  - Ascites [Recovering/Resolving]
  - Dehydration [Unknown]
  - International normalised ratio increased [Recovering/Resolving]
  - Pulmonary arterial hypertension [Unknown]
  - Haematoma [Recovering/Resolving]
  - Dialysis [Recovering/Resolving]
  - Peripheral swelling [Unknown]
  - Cough [Recovering/Resolving]
  - Drug interaction [Recovering/Resolving]
  - Feeling abnormal [Unknown]
  - Diarrhoea [Unknown]
  - Thrombosis [Unknown]
  - Bronchitis [Recovering/Resolving]
  - Disease progression [Unknown]
  - Oedema [Recovering/Resolving]
  - Fluid retention [Recovering/Resolving]
  - Paracentesis [Unknown]
  - Nasal congestion [Unknown]

NARRATIVE: CASE EVENT DATE: 201612
